FAERS Safety Report 24768099 (Version 1)
Quarter: 2024Q4

REPORT INFORMATION
  Report Type: Spontaneous
  Country: US (occurrence: US)
  Receive Date: 20241223
  Receipt Date: 20241223
  Transmission Date: 20250115
  Serious: No
  Sender: STI PHARMA
  Company Number: US-STI Pharma LLC-2167541

PATIENT
  Age: 67 Year
  Sex: Female

DRUGS (5)
  1. ETHAMBUTOL HYDROCHLORIDE [Suspect]
     Active Substance: ETHAMBUTOL HYDROCHLORIDE
  2. AZITHROMYCIN [Concomitant]
     Active Substance: AZITHROMYCIN
  3. MOXIFLOXACIN [Concomitant]
     Active Substance: MOXIFLOXACIN
  4. LINEZOLID [Concomitant]
     Active Substance: LINEZOLID
  5. RIFAMPIN [Concomitant]
     Active Substance: RIFAMPIN

REACTIONS (2)
  - Abdominal discomfort [Unknown]
  - Rash [Unknown]
